FAERS Safety Report 7998346-3 (Version None)
Quarter: 2011Q4

REPORT INFORMATION
  Report Type: 
  Country: None (occurrence: None)
  Receive Date: 20111221
  Receipt Date: 20110803
  Transmission Date: 20120403
  Serious: No
  Sender: FDA-Public Use
  Company Number: US-GLAXOSMITHKLINE-A0939540A

PATIENT
  Age: 49 Year
  Sex: Male

DRUGS (8)
  1. EPIVIR [Concomitant]
  2. VIRAMUNE [Concomitant]
  3. NEVIRAPINE [Concomitant]
  4. NORVIR [Concomitant]
  5. LOVAZA [Suspect]
     Indication: BLOOD TRIGLYCERIDES INCREASED
     Dosage: 1CAP PER DAY
     Route: 048
     Dates: start: 20080101
  6. LIPITOR [Suspect]
     Dosage: 20MG PER DAY
     Route: 048
     Dates: start: 20070101
  7. DIDANOSINE [Concomitant]
  8. REYATAZ [Concomitant]

REACTIONS (4)
  - EYELID OEDEMA [None]
  - LOCAL SWELLING [None]
  - ABNORMAL SENSATION IN EYE [None]
  - SWELLING FACE [None]
